FAERS Safety Report 11138415 (Version 2)
Quarter: 2015Q2

REPORT INFORMATION
  Report Type: Spontaneous
  Country: DE (occurrence: DE)
  Receive Date: 20150526
  Receipt Date: 20150526
  Transmission Date: 20150821
  Serious: Yes (Other)
  Sender: FDA-Public Use
  Company Number: DE-DRREDDYS-GER/GER/15/0048172

PATIENT
  Age: 21 Year
  Sex: Female
  Weight: 57 kg

DRUGS (6)
  1. XANAFLU [Suspect]
     Active Substance: INFLUENZA VIRUS VACCINE
     Indication: IMMUNISATION
     Route: 030
     Dates: start: 20141008, end: 20141008
  2. IMAP [Suspect]
     Active Substance: FLUSPIRILENE
     Indication: DEPRESSION
     Route: 030
     Dates: start: 20140417, end: 20141017
  3. MAXIM [Concomitant]
     Active Substance: DIENOGEST\ETHINYL ESTRADIOL
     Indication: ORAL CONTRACEPTION
     Route: 048
     Dates: start: 20140417, end: 20140518
  4. FOLIO FORTE [Concomitant]
     Active Substance: FOLIC ACID\VITAMINS
     Indication: PROPHYLAXIS OF NEURAL TUBE DEFECT
     Route: 048
     Dates: start: 20140605, end: 20141017
  5. FLUOXETINE [Suspect]
     Active Substance: FLUOXETINE\FLUOXETINE HYDROCHLORIDE
     Indication: ANXIETY DISORDER
     Route: 048
     Dates: start: 20140417, end: 20141017
  6. AMITRIPTYLINE [Suspect]
     Active Substance: AMITRIPTYLINE
     Indication: DEPRESSION
     Route: 048
     Dates: start: 20140417, end: 20141017

REACTIONS (4)
  - Vaginal haemorrhage [Unknown]
  - Foetal death [Not Recovered/Not Resolved]
  - Premature rupture of membranes [Unknown]
  - Exposure during pregnancy [Unknown]
